FAERS Safety Report 10023974 (Version 3)
Quarter: 2014Q2

REPORT INFORMATION
  Report Type: Spontaneous
  Country: US (occurrence: US)
  Receive Date: 20140320
  Receipt Date: 20140507
  Transmission Date: 20141212
  Serious: Yes (Other)
  Sender: FDA-Public Use
  Company Number: US-ASTELLAS-2011US001593

PATIENT
  Age: 51 Year
  Sex: Female
  Weight: 57 kg

DRUGS (13)
  1. PROGRAF [Suspect]
     Indication: RENAL AND PANCREAS TRANSPLANT REJECTION
     Dosage: 5 MG AM, 4 MG PM
     Route: 065
     Dates: start: 20140422
  2. PROGRAF [Suspect]
     Route: 048
     Dates: start: 20090717
  3. PROGRAF [Suspect]
     Dosage: 6 MG AM, UNKNOWN FREQ.
     Route: 065
  4. PROGRAF [Suspect]
     Dosage: 5 MG PM, UNKNOWN FREQ.
     Route: 065
  5. ASPIRIN [Concomitant]
     Indication: ANTICOAGULANT THERAPY
     Route: 065
  6. LOPRESSOR [Concomitant]
     Indication: BLOOD PRESSURE
     Route: 048
     Dates: start: 2005
  7. MYFORTIC [Concomitant]
     Indication: RENAL AND PANCREAS TRANSPLANT
     Route: 048
     Dates: start: 20090717
  8. PRILOSEC [Concomitant]
     Indication: GASTRIC DISORDER
     Route: 048
     Dates: start: 2007
  9. ZOCOR [Concomitant]
     Indication: BLOOD CHOLESTEROL
     Route: 048
     Dates: start: 2006
  10. BACTRIM [Concomitant]
     Indication: ANTIBIOTIC PROPHYLAXIS
     Dates: start: 20090717
  11. VALCYTE [Concomitant]
     Indication: ANTIVIRAL PROPHYLAXIS
     Route: 048
     Dates: start: 20090717
  12. EFFEXOR [Concomitant]
     Indication: DEPRESSION
     Route: 048
     Dates: start: 1996
  13. AMBIEN [Concomitant]
     Indication: SLEEP DISORDER
     Route: 048
     Dates: start: 20090717

REACTIONS (6)
  - Pancreas transplant [Unknown]
  - Pancreas transplant rejection [Recovered/Resolved]
  - Movement disorder [Unknown]
  - Fatigue [Unknown]
  - Off label use [Unknown]
  - Drug ineffective for unapproved indication [Unknown]
